FAERS Safety Report 9606776 (Version 2)
Quarter: 2013Q4

REPORT INFORMATION
  Report Type: Spontaneous
  Country: US (occurrence: US)
  Receive Date: 20131008
  Receipt Date: 20131008
  Transmission Date: 20140711
  Serious: Yes (Other)
  Sender: FDA-Public Use
  Company Number: US-AMGEN-USASP2013057680

PATIENT
  Age: 70 Year
  Sex: Female
  Weight: 71.2 kg

DRUGS (1)
  1. PROLIA [Suspect]
     Indication: OSTEOPOROSIS POSTMENOPAUSAL
     Dosage: 60 MG, Q6MO
     Route: 065
     Dates: start: 20130214

REACTIONS (9)
  - Urinary tract infection [Recovered/Resolved]
  - Periarthritis [Unknown]
  - Feeling abnormal [Unknown]
  - Skin lesion [Recovering/Resolving]
  - Pain [Unknown]
  - Myalgia [Unknown]
  - Arthralgia [Recovered/Resolved]
  - Erythema [Recovered/Resolved]
  - Rash [Unknown]
